FAERS Safety Report 8577363-9 (Version None)
Quarter: 2012Q3

REPORT INFORMATION
  Report Type: 
  Country: None (occurrence: None)
  Receive Date: 20120807
  Receipt Date: 20120801
  Transmission Date: 20120928
  Serious: Yes (Hospitalization, Disabling)
  Sender: FDA-Public Use
  Company Number: US-009507513-2011SP050850

PATIENT

DRUGS (4)
  1. NUVARING [Suspect]
     Indication: CONTRACEPTION
  2. NUVARING [Suspect]
     Indication: DYSMENORRHOEA
     Dosage: UNK UNK, QM
     Route: 067
     Dates: start: 20091114, end: 20091201
  3. COUGH, COLD, AND FLU THERAPIES (UNSPECIFIED) [Concomitant]
     Indication: ATTENTION DEFICIT/HYPERACTIVITY DISORDER
     Dates: end: 20091220
  4. LAMICTAL [Concomitant]
     Indication: BIPOLAR DISORDER
     Dates: end: 20091220

REACTIONS (16)
  - OROPHARYNGEAL PAIN [None]
  - NEUROLOGICAL SYMPTOM [None]
  - VENOUS THROMBOSIS [None]
  - MENTAL DISORDER [None]
  - PARTIAL SEIZURES [None]
  - LYMPHADENOPATHY MEDIASTINAL [None]
  - NECK PAIN [None]
  - MAJOR DEPRESSION [None]
  - SUICIDAL IDEATION [None]
  - CEREBRAL THROMBOSIS [None]
  - VOMITING [None]
  - MEDIASTINAL MASS [None]
  - MIGRAINE [None]
  - OFF LABEL USE [None]
  - DIARRHOEA [None]
  - LYMPHADENOPATHY [None]
